FAERS Safety Report 7694671-4 (Version None)
Quarter: 2011Q3

REPORT INFORMATION
  Report Type: 
  Country: None (occurrence: None)
  Receive Date: 20110816
  Receipt Date: 20110803
  Transmission Date: 20111222
  Serious: Yes (Other)
  Sender: FDA-Public Use
  Company Number: MC201100323

PATIENT
  Age: 64 Year
  Sex: Female
  Weight: 86.002 kg

DRUGS (4)
  1. ANGIOMAX [Suspect]
     Indication: PERCUTANEOUS CORONARY INTERVENTION
     Dosage: 0.75 MG/KG,BOLUS, FEM ACCESS PCI  1.75 MG/KG, HR, FEM ACCESS PCI
     Dates: start: 20110705, end: 20110705
  2. ANGIOMAX [Suspect]
     Indication: ACUTE MYOCARDIAL INFARCTION
     Dosage: 0.75 MG/KG,BOLUS, FEM ACCESS PCI  1.75 MG/KG, HR, FEM ACCESS PCI
     Dates: start: 20110705, end: 20110705
  3. ASPIRIN [Concomitant]
  4. PLAVIX [Concomitant]

REACTIONS (6)
  - HYPOTENSION [None]
  - THROMBOSIS IN DEVICE [None]
  - CHEST PAIN [None]
  - ARTERIOSCLEROSIS CORONARY ARTERY [None]
  - CORONARY ARTERY OCCLUSION [None]
  - HYPERHIDROSIS [None]
